FAERS Safety Report 7818904-6 (Version None)
Quarter: 2011Q4

REPORT INFORMATION
  Report Type: 
  Country: None (occurrence: None)
  Receive Date: 20111017
  Receipt Date: 20111017
  Transmission Date: 20120403
  Serious: Yes (Hospitalization)
  Sender: FDA-Public Use
  Company Number: None

PATIENT
  Sex: Male
  Weight: 71.82 kg

DRUGS (1)
  1. CISPLATIN [Suspect]
     Dosage: 198 MG
     Dates: end: 20080129

REACTIONS (6)
  - PYREXIA [None]
  - DYSPHAGIA [None]
  - OROPHARYNGEAL PAIN [None]
  - ORAL MUCOSAL ERYTHEMA [None]
  - MUCOSAL INFLAMMATION [None]
  - CHILLS [None]
